FAERS Safety Report 19707701 (Version 1)
Quarter: 2021Q3

REPORT INFORMATION
  Report Type: Spontaneous
  Country: JP (occurrence: JP)
  Receive Date: 20210816
  Receipt Date: 20210816
  Transmission Date: 20211014
  Serious: Yes (Other)
  Sender: FDA-Public Use
  Company Number: NVSJ2021JP012000

PATIENT
  Age: 83 Year
  Sex: Male

DRUGS (2)
  1. ZOLEDRONIC ACID FOR I.V. INFUSION [Suspect]
     Active Substance: ZOLEDRONIC ACID
     Indication: PRODUCT USED FOR UNKNOWN INDICATION
     Dosage: UNK
     Route: 065
  2. DENOSUMAB [Suspect]
     Active Substance: DENOSUMAB
     Indication: PRODUCT USED FOR UNKNOWN INDICATION
     Dosage: UNK
     Route: 065

REACTIONS (6)
  - Tooth loss [Unknown]
  - Osteonecrosis of jaw [Unknown]
  - Gingival swelling [Unknown]
  - Abscess jaw [Unknown]
  - Mastication disorder [Recovering/Resolving]
  - Exposed bone in jaw [Unknown]
